FAERS Safety Report 8377797-1 (Version None)
Quarter: 2012Q2

REPORT INFORMATION
  Report Type: 
  Country: None (occurrence: None)
  Receive Date: 20120521
  Receipt Date: 20120507
  Transmission Date: 20120825
  Serious: Yes (Disabling, Other)
  Sender: FDA-Public Use
  Company Number: 2011MA001721

PATIENT
  Sex: Female
  Weight: 80.7403 kg

DRUGS (29)
  1. AMBIEN [Concomitant]
  2. HUMALOG [Concomitant]
  3. LOPRESSOR [Concomitant]
  4. DARVOCET [Concomitant]
  5. M.V.I. [Concomitant]
  6. LOVAZA [Concomitant]
  7. ASPIRIN [Concomitant]
  8. CLINDAMYCIN [Concomitant]
  9. INSULIN [Concomitant]
  10. NOVOLOG [Concomitant]
  11. ANUSOL HC [Concomitant]
  12. CRESTOR [Concomitant]
  13. GENTAMICIN [Concomitant]
  14. NEURONTIN [Concomitant]
  15. SOMA [Concomitant]
  16. STEROID INJECTION [Concomitant]
  17. CINNAMON [Concomitant]
  18. PROTONIX [Concomitant]
  19. ZELNORM [Concomitant]
  20. METOCLOPRAMIDE [Suspect]
     Indication: GASTROOESOPHAGEAL REFLUX DISEASE
     Dosage: 10 MG;1 OR 2 TABS AC + HS;PO
     Route: 048
     Dates: start: 20050308, end: 20100121
  21. METOCLOPRAMIDE [Suspect]
     Indication: IMPAIRED GASTRIC EMPTYING
     Dosage: 10 MG;1 OR 2 TABS AC + HS;PO
     Route: 048
     Dates: start: 20050308, end: 20100121
  22. MIRALAX [Concomitant]
  23. NEXIUM [Concomitant]
  24. OMEPRAZOLE [Concomitant]
  25. ZOLOFT [Concomitant]
  26. FLUCONAZOLE [Concomitant]
  27. LANTUS [Concomitant]
  28. SINEMET [Concomitant]
  29. TETRABENAZINE [Concomitant]

REACTIONS (59)
  - ABDOMINAL DISTENSION [None]
  - DIABETIC GASTROPARESIS [None]
  - ABDOMINAL TENDERNESS [None]
  - DYSKINESIA [None]
  - TREMOR [None]
  - CHANGE OF BOWEL HABIT [None]
  - HAEMATOCHEZIA [None]
  - EARLY SATIETY [None]
  - ENCEPHALITIS [None]
  - DYSTONIA [None]
  - MOTOR DYSFUNCTION [None]
  - CHOKING [None]
  - CEREBROVASCULAR ACCIDENT [None]
  - MITRAL VALVE INCOMPETENCE [None]
  - SENSORY DISTURBANCE [None]
  - DISCOMFORT [None]
  - GASTRITIS [None]
  - ASTHENIA [None]
  - MUSCLE TWITCHING [None]
  - MASTICATION DISORDER [None]
  - TEARFULNESS [None]
  - PROTRUSION TONGUE [None]
  - OVARIAN CYST [None]
  - DROOLING [None]
  - DIABETES MELLITUS INADEQUATE CONTROL [None]
  - NEUROPATHY PERIPHERAL [None]
  - AMAUROSIS FUGAX [None]
  - PARKINSONISM [None]
  - BLINDNESS [None]
  - DYSPHAGIA [None]
  - TREATMENT NONCOMPLIANCE [None]
  - VIITH NERVE PARALYSIS [None]
  - GASTROINTESTINAL HYPOMOTILITY [None]
  - ECONOMIC PROBLEM [None]
  - CONSTIPATION [None]
  - TRIGEMINAL NEURALGIA [None]
  - FEAR [None]
  - DRUG INEFFECTIVE [None]
  - EXTRAPYRAMIDAL DISORDER [None]
  - RECTAL HAEMORRHAGE [None]
  - COORDINATION ABNORMAL [None]
  - VENOUS ANGIOMA OF BRAIN [None]
  - APTYALISM [None]
  - CHOLELITHIASIS [None]
  - NAUSEA [None]
  - DIZZINESS [None]
  - HYPOAESTHESIA [None]
  - DEMYELINATION [None]
  - MOVEMENT DISORDER [None]
  - HAEMORRHOIDS [None]
  - EMOTIONAL DISORDER [None]
  - TARDIVE DYSKINESIA [None]
  - DYSPEPSIA [None]
  - ABDOMINAL PAIN UPPER [None]
  - DYSARTHRIA [None]
  - GASTRIC ATONY [None]
  - BEZOAR [None]
  - HELICOBACTER TEST POSITIVE [None]
  - CONDITION AGGRAVATED [None]
